FAERS Safety Report 6284393-9 (Version None)
Quarter: 2009Q3

REPORT INFORMATION
  Report Type: 
  Country: None (occurrence: None)
  Receive Date: 20090727
  Receipt Date: 20090715
  Transmission Date: 20100115
  Serious: Yes (Hospitalization, Other)
  Sender: FDA-Public Use
  Company Number: JP-ROCHE-642533

PATIENT
  Sex: Female
  Weight: 29 kg

DRUGS (4)
  1. XELODA [Suspect]
     Indication: COLON CANCER
     Dosage: TWO WEEKS ADMINISTRATION FOLLOWED BY 1 WEEK REST
     Route: 048
     Dates: start: 20090602, end: 20090616
  2. PARIET [Concomitant]
     Route: 048
     Dates: start: 20090602
  3. MAGMITT [Concomitant]
     Route: 048
     Dates: start: 20090602
  4. PURSENNID [Concomitant]
     Route: 048
     Dates: start: 20090602

REACTIONS (8)
  - ASCITES [None]
  - BLOOD ALBUMIN DECREASED [None]
  - DIARRHOEA [None]
  - ECZEMA [None]
  - PALMAR-PLANTAR ERYTHRODYSAESTHESIA SYNDROME [None]
  - PRURITUS [None]
  - STOMATITIS [None]
  - TRISMUS [None]
